FAERS Safety Report 8173357-6 (Version None)
Quarter: 2012Q1

REPORT INFORMATION
  Report Type: 
  Country: None (occurrence: None)
  Receive Date: 20120229
  Receipt Date: 20120228
  Transmission Date: 20120608
  Serious: Yes (Other)
  Sender: FDA-Public Use
  Company Number: US-JNJFOC-20120213473

PATIENT
  Age: 60 Year
  Sex: Male

DRUGS (1)
  1. NICOTINE [Suspect]
     Indication: PRODUCT USED FOR UNKNOWN INDICATION
     Dosage: 10 PIECES A DAY, FOR THE PAST FOUR YEARS
     Route: 048
     Dates: start: 20080101

REACTIONS (3)
  - INTENTIONAL DRUG MISUSE [None]
  - DRUG ADMINISTRATION ERROR [None]
  - NICOTINE DEPENDENCE [None]
